FAERS Safety Report 26208400 (Version 1)
Quarter: 2025Q4

REPORT INFORMATION
  Report Type: Report from Study
  Country: US (occurrence: US)
  Receive Date: 20251229
  Receipt Date: 20251229
  Transmission Date: 20260118
  Serious: Yes (Other)
  Sender: SANOFI AVENTIS
  Company Number: US-SA-2025SA166474

PATIENT
  Age: 24 Year
  Sex: Male
  Weight: 81.1 kg

DRUGS (33)
  1. TEPLIZUMAB-MZWV [Suspect]
     Active Substance: TEPLIZUMAB-MZWV
     Indication: Presymptomatic type 1 diabetes mellitus
     Dosage: 65 UG/M2
     Route: 042
     Dates: start: 20250113, end: 20250113
  2. TEPLIZUMAB-MZWV [Suspect]
     Active Substance: TEPLIZUMAB-MZWV
     Dosage: 125 UG/M2
     Route: 042
     Dates: start: 20250114, end: 20250114
  3. TEPLIZUMAB-MZWV [Suspect]
     Active Substance: TEPLIZUMAB-MZWV
     Dosage: 250 UG/M2
     Route: 042
     Dates: start: 20250120, end: 20250120
  4. TEPLIZUMAB-MZWV [Suspect]
     Active Substance: TEPLIZUMAB-MZWV
     Dosage: 500 UG/M2
     Route: 042
     Dates: start: 20250121, end: 20250121
  5. TEPLIZUMAB-MZWV [Suspect]
     Active Substance: TEPLIZUMAB-MZWV
     Dosage: 1030 UG/M2
     Route: 042
     Dates: start: 20250123, end: 20250123
  6. TEPLIZUMAB-MZWV [Suspect]
     Active Substance: TEPLIZUMAB-MZWV
     Dosage: 1030 UG/M2
     Route: 042
     Dates: start: 20250126, end: 20250126
  7. TEPLIZUMAB-MZWV [Suspect]
     Active Substance: TEPLIZUMAB-MZWV
     Dosage: 1030 UG/M2
     Route: 042
     Dates: start: 20250127, end: 20250127
  8. TEPLIZUMAB-MZWV [Suspect]
     Active Substance: TEPLIZUMAB-MZWV
     Dosage: 1030 UG/M2
     Route: 042
     Dates: start: 20250129, end: 20250129
  9. TEPLIZUMAB-MZWV [Suspect]
     Active Substance: TEPLIZUMAB-MZWV
     Dosage: 1030 UG/M2
     Route: 042
     Dates: start: 20250130, end: 20250130
  10. TEPLIZUMAB-MZWV [Suspect]
     Active Substance: TEPLIZUMAB-MZWV
     Dosage: 1030 UG/M2
     Route: 042
     Dates: start: 20250131, end: 20250131
  11. TEPLIZUMAB-MZWV [Suspect]
     Active Substance: TEPLIZUMAB-MZWV
     Dosage: 1030 UG/M2
     Route: 042
     Dates: start: 20250201, end: 20250201
  12. TEPLIZUMAB-MZWV [Suspect]
     Active Substance: TEPLIZUMAB-MZWV
     Dosage: 1030 UG/M2
     Route: 042
     Dates: start: 20250202, end: 20250202
  13. TEPLIZUMAB-MZWV [Suspect]
     Active Substance: TEPLIZUMAB-MZWV
     Dosage: 1030 UG/M2
     Route: 042
     Dates: start: 20250203, end: 20250203
  14. TEPLIZUMAB-MZWV [Suspect]
     Active Substance: TEPLIZUMAB-MZWV
     Dosage: 1030 UG/M2
     Route: 042
     Dates: start: 20250204, end: 20250204
  15. FINASTERIDE [Concomitant]
     Active Substance: FINASTERIDE
     Indication: Alopecia
     Dosage: 1 MG, QD
     Route: 065
     Dates: start: 20240124
  16. FINASTERIDE [Concomitant]
     Active Substance: FINASTERIDE
     Indication: Premedication
  17. ACETAMINOPHEN [Concomitant]
     Active Substance: ACETAMINOPHEN
     Indication: Inflammation
     Dosage: 650 MG, QD
     Route: 065
     Dates: start: 20250129, end: 20250129
  18. ACETAMINOPHEN [Concomitant]
     Active Substance: ACETAMINOPHEN
     Indication: Premedication
     Dosage: 650 MG, QD
     Route: 065
     Dates: start: 20250130, end: 20250130
  19. ACETAMINOPHEN [Concomitant]
     Active Substance: ACETAMINOPHEN
     Dosage: 650 MG, QD
     Route: 065
     Dates: start: 20250131, end: 20250131
  20. ACETAMINOPHEN [Concomitant]
     Active Substance: ACETAMINOPHEN
     Dosage: 650 MG, 1X
     Route: 065
     Dates: start: 20250201, end: 20250201
  21. ACETAMINOPHEN [Concomitant]
     Active Substance: ACETAMINOPHEN
     Dosage: 650 MG, 1X
     Route: 065
     Dates: start: 20250202, end: 20250202
  22. ACETAMINOPHEN [Concomitant]
     Active Substance: ACETAMINOPHEN
     Dosage: 650 MG, 1X
     Route: 065
     Dates: start: 20250203, end: 20250203
  23. ACETAMINOPHEN [Concomitant]
     Active Substance: ACETAMINOPHEN
     Dosage: 650 MG, 1X
     Route: 065
     Dates: start: 20250204, end: 20250204
  24. DIPHENHYDRAMINE [Concomitant]
     Active Substance: DIPHENHYDRAMINE
     Indication: Hypersensitivity
     Dosage: 50 MG, QD
     Route: 065
     Dates: start: 20250129, end: 20250129
  25. DIPHENHYDRAMINE [Concomitant]
     Active Substance: DIPHENHYDRAMINE
     Indication: Premedication
     Dosage: 50 MG, QD
     Route: 065
     Dates: start: 20250130, end: 20250130
  26. DIPHENHYDRAMINE [Concomitant]
     Active Substance: DIPHENHYDRAMINE
     Dosage: 50 MG, QD
     Route: 065
     Dates: start: 20250131, end: 20250131
  27. DIPHENHYDRAMINE [Concomitant]
     Active Substance: DIPHENHYDRAMINE
     Dosage: 50 MG, 1X
     Route: 065
     Dates: start: 20250201, end: 20250201
  28. DIPHENHYDRAMINE [Concomitant]
     Active Substance: DIPHENHYDRAMINE
     Dosage: 50 MG, 1X
     Route: 065
     Dates: start: 20250202, end: 20250202
  29. DIPHENHYDRAMINE [Concomitant]
     Active Substance: DIPHENHYDRAMINE
     Dosage: 50 MG, 1X
     Route: 065
     Dates: start: 20250203, end: 20250203
  30. DIPHENHYDRAMINE [Concomitant]
     Active Substance: DIPHENHYDRAMINE
     Dosage: 50 MG, 1X
     Route: 065
     Dates: start: 20250204, end: 20250204
  31. ONDANSETRON [Concomitant]
     Active Substance: ONDANSETRON
     Indication: Nausea
     Dosage: 8 MG, QD
     Route: 065
     Dates: start: 20250129, end: 20250129
  32. ONDANSETRON [Concomitant]
     Active Substance: ONDANSETRON
     Indication: Premedication
     Dosage: 8 MG, 1X
     Route: 065
     Dates: start: 20250130, end: 20250130
  33. ONDANSETRON [Concomitant]
     Active Substance: ONDANSETRON
     Dosage: 8 MG, QD
     Route: 065
     Dates: start: 20250131, end: 20250131

REACTIONS (1)
  - Infectious mononucleosis [Recovered/Resolved]

NARRATIVE: CASE EVENT DATE: 20250212
